FAERS Safety Report 4474667-6 (Version None)
Quarter: 2004Q4

REPORT INFORMATION
  Report Type: 
  Country: None (occurrence: None)
  Receive Date: 20041012
  Receipt Date: 20041004
  Transmission Date: 20050328
  Serious: Yes (Other)
  Sender: FDA-Public Use
  Company Number: DE-2004-027976

PATIENT
  Age: 34 Year
  Sex: Female

DRUGS (1)
  1. MIRENA [Suspect]
     Indication: CONTRACEPTION
     Dosage: 20 UG/DAY,  CONT, INTRA-UTERINE
     Route: 015
     Dates: start: 20021128

REACTIONS (2)
  - CONDITION AGGRAVATED [None]
  - HAEMANGIOMA OF LIVER [None]
